FAERS Safety Report 15815533 (Version 2)
Quarter: 2019Q1

REPORT INFORMATION
  Report Type: Spontaneous
  Country: ES (occurrence: ES)
  Receive Date: 20190112
  Receipt Date: 20190203
  Transmission Date: 20190417
  Serious: Yes (Other)
  Sender: FDA-Public Use
  Company Number: PHHY2019ES004268

PATIENT

DRUGS (4)
  1. LEVETIRACETAM. [Suspect]
     Active Substance: LEVETIRACETAM
     Dosage: 500 MG, BID
     Route: 065
  2. LEVETIRACETAM. [Suspect]
     Active Substance: LEVETIRACETAM
     Indication: PRODUCT USED FOR UNKNOWN INDICATION
     Dosage: 750 MG, BID
     Route: 065
  3. ESLICARBAZEPINE ACETATE [Concomitant]
     Active Substance: ESLICARBAZEPINE ACETATE
     Dosage: 800 MG, UNK
     Route: 065
  4. ESLICARBAZEPINE ACETATE [Concomitant]
     Active Substance: ESLICARBAZEPINE ACETATE
     Indication: PRODUCT USED FOR UNKNOWN INDICATION
     Dosage: 1200 MG, UNK
     Route: 065

REACTIONS (7)
  - Condition aggravated [Unknown]
  - Irritability [Unknown]
  - Generalised tonic-clonic seizure [Recovered/Resolved]
  - Partial seizures [Recovered/Resolved]
  - Drug ineffective [Unknown]
  - Tension headache [Unknown]
  - Somnolence [Unknown]
